FAERS Safety Report 10189934 (Version 3)
Quarter: 2014Q3

REPORT INFORMATION
  Report Type: Report from Study
  Country: US (occurrence: US)
  Receive Date: 20140522
  Receipt Date: 20140718
  Transmission Date: 20150326
  Serious: Yes (Other)
  Sender: FDA-Public Use
  Company Number: US-ROCHE-1383015

PATIENT
  Age: 24 Year
  Sex: Male
  Weight: 71.73 kg

DRUGS (5)
  1. CLONAZEPAM. [Suspect]
     Active Substance: CLONAZEPAM
     Indication: CONVULSION
     Route: 048
  2. RIBASPHERE [Suspect]
     Active Substance: RIBAVIRIN
     Indication: CHRONIC HEPATITIS C
     Dosage: IN DIVIDED DOSES, 400/400
     Route: 048
     Dates: start: 20140328
  3. SOMA [Concomitant]
     Active Substance: CARISOPRODOL
     Indication: MUSCULOSKELETAL PAIN
     Route: 048
  4. RANITIDINE [Concomitant]
     Active Substance: RANITIDINE\RANITIDINE HYDROCHLORIDE
     Route: 048
  5. PEGASYS [Suspect]
     Active Substance: PEGINTERFERON ALFA-2A
     Indication: CHRONIC HEPATITIS C
     Dosage: PROCLICK INJECTOR
     Route: 058
     Dates: start: 20140328

REACTIONS (13)
  - Diarrhoea [Unknown]
  - Influenza like illness [Recovered/Resolved]
  - Insomnia [Not Recovered/Not Resolved]
  - Bone pain [Unknown]
  - Cough [Unknown]
  - Convulsion [Recovering/Resolving]
  - Drug dose omission [Unknown]
  - Weight decreased [Unknown]
  - Rash pruritic [Recovered/Resolved]
  - Pain in extremity [Not Recovered/Not Resolved]
  - Pain [Unknown]
  - Back pain [Unknown]
  - Arthralgia [Not Recovered/Not Resolved]

NARRATIVE: CASE EVENT DATE: 20140328
